FAERS Safety Report 22706804 (Version 4)
Quarter: 2023Q4

REPORT INFORMATION
  Report Type: Spontaneous
  Country: US (occurrence: US)
  Receive Date: 20230714
  Receipt Date: 20231004
  Transmission Date: 20240110
  Serious: Yes (Other)
  Sender: FDA-Public Use
  Company Number: US-PFIZER INC-202300248579

PATIENT
  Age: 42 Year
  Sex: Male
  Weight: 93.44 kg

DRUGS (1)
  1. SOMATROPIN [Suspect]
     Active Substance: SOMATROPIN
     Indication: Prader-Willi syndrome
     Dosage: 0.8 MG (0.8 MILLIGRAM MONDAY TO FRIDAY) 3 TIMES PER WEEK

REACTIONS (2)
  - Diabetes mellitus [Unknown]
  - Intentional product misuse [Unknown]
